FAERS Safety Report 13072645 (Version 3)
Quarter: 2019Q2

REPORT INFORMATION
  Report Type: Spontaneous
  Country: US (occurrence: US)
  Receive Date: 20161229
  Receipt Date: 20190506
  Transmission Date: 20190711
  Serious: Yes (Other)
  Sender: FDA-Public Use
  Company Number: US-SA-2016SA190470

PATIENT
  Age: 71 Year
  Sex: Female
  Weight: 58.96 kg

DRUGS (8)
  1. TAXOTERE [Suspect]
     Active Substance: DOCETAXEL
     Dosage: 180 MG,Q3W
     Route: 042
     Dates: start: 20120813, end: 20120813
  2. TAXOTERE [Suspect]
     Active Substance: DOCETAXEL
     Indication: BREAST CANCER FEMALE
     Dosage: 180 MG,Q3W
     Route: 042
     Dates: start: 20120611, end: 20120611
  3. NEOSAR [Concomitant]
     Active Substance: CYCLOPHOSPHAMIDE
  4. PROTONIX [Concomitant]
     Active Substance: PANTOPRAZOLE SODIUM
     Dosage: 20 MG
     Dates: start: 20120414, end: 20120920
  5. DECADRON [Concomitant]
     Active Substance: DEXAMETHASONE
     Dosage: 4 MG
     Dates: start: 20120525, end: 20121011
  6. TOPROL XL [Concomitant]
     Active Substance: METOPROLOL SUCCINATE
     Dosage: 100 MG, QD
     Dates: start: 20120608, end: 20130307
  7. METOPROLOL. [Concomitant]
     Active Substance: METOPROLOL
     Dosage: UNK UNK,UNK
     Route: 065
     Dates: start: 2010
  8. DOXORUBICIN [Concomitant]
     Active Substance: DOXORUBICIN

REACTIONS (6)
  - Alopecia [Recovering/Resolving]
  - Emotional distress [Unknown]
  - Impaired quality of life [Unknown]
  - Psychological trauma [Unknown]
  - Pain [Unknown]
  - Anxiety [Unknown]
